FAERS Safety Report 9282537 (Version 1)
Quarter: 2013Q2

REPORT INFORMATION
  Report Type: Spontaneous
  Country: US (occurrence: US)
  Receive Date: 20130510
  Receipt Date: 20130510
  Transmission Date: 20140414
  Serious: Yes (Other)
  Sender: FDA-Public Use
  Company Number: US-PFIZER INC-2013144689

PATIENT
  Sex: Female

DRUGS (1)
  1. DILANTIN-125 [Suspect]
     Dosage: UNK
     Dates: end: 201304

REACTIONS (5)
  - Convulsion [Unknown]
  - Activities of daily living impaired [Unknown]
  - Dysstasia [Unknown]
  - Injury [Unknown]
  - Feeling hot [Unknown]
